FAERS Safety Report 23763074 (Version 3)
Quarter: 2024Q2

REPORT INFORMATION
  Report Type: Spontaneous
  Country: US (occurrence: US)
  Receive Date: 20240419
  Receipt Date: 20240516
  Transmission Date: 20240716
  Serious: No
  Sender: FDA-Public Use
  Company Number: US-SANOFI-02015943

PATIENT
  Age: 52 Year
  Sex: Female

DRUGS (1)
  1. LANTUS SOLOSTAR [Suspect]
     Active Substance: INSULIN GLARGINE
     Indication: Diabetes mellitus
     Dosage: 44 IU

REACTIONS (3)
  - Injection site pain [Unknown]
  - Wrong technique in device usage process [Unknown]
  - Device mechanical issue [Unknown]
